FAERS Safety Report 19036501 (Version 1)
Quarter: 2021Q1

REPORT INFORMATION
  Report Type: Spontaneous
  Country: US (occurrence: US)
  Receive Date: 20210319
  Receipt Date: 20210319
  Transmission Date: 20210420
  Serious: Yes (Hospitalization)
  Sender: FDA-Public Use
  Company Number: None

PATIENT
  Age: 57 Year
  Sex: Female

DRUGS (8)
  1. SIMVASTATIN 20 MG DAILY [Concomitant]
  2. VITAMIN D3 4,000 UNITS DAILY [Concomitant]
  3. CLONAZEPAM 1 MG IN THE MORNING AND 2 MG AT BEDTIME [Concomitant]
  4. MELATONIN 10 MG AT 7 PM [Concomitant]
  5. ASPIRIN CHEWABLE [Suspect]
     Active Substance: ASPIRIN
     Indication: COVID-19
     Route: 048
     Dates: start: 20201120, end: 20210209
  6. LEVOTHYROXINE 117 MCG DAILY [Concomitant]
  7. LAMOTRIGINE 200 MG TWICE DAILY [Concomitant]
  8. QUETIAPINE 150 MG IN THE MORNING AND 400 MG AT BEDTIME [Concomitant]

REACTIONS (7)
  - Erosive oesophagitis [None]
  - Occult blood positive [None]
  - Hypochromasia [None]
  - Urinary tract infection [None]
  - Iron deficiency anaemia [None]
  - Hiatus hernia [None]
  - Gastritis erosive [None]

NARRATIVE: CASE EVENT DATE: 20210209
